FAERS Safety Report 10703711 (Version 2)
Quarter: 2015Q1

REPORT INFORMATION
  Report Type: Spontaneous
  Country: US (occurrence: US)
  Receive Date: 20150112
  Receipt Date: 20150203
  Transmission Date: 20150721
  Serious: Yes (Hospitalization)
  Sender: FDA-Public Use
  Company Number: US-UNITED THERAPEUTICS-UNT-2015-000016

PATIENT
  Sex: Female

DRUGS (2)
  1. REMODULIN [Suspect]
     Active Substance: TREPROSTINIL
     Indication: COR PULMONALE CHRONIC
     Dosage: 0.017 ?G/KG, CONTINUING
     Route: 041
     Dates: start: 20141212
  2. REMODULIN [Suspect]
     Active Substance: TREPROSTINIL
     Indication: PULMONARY HYPERTENSION
     Dosage: 0.0145 ?G/KG, CONTINUING
     Route: 041
     Dates: start: 20141212

REACTIONS (4)
  - Pain [Unknown]
  - Dyspnoea [Unknown]
  - Fluid overload [Unknown]
  - Oedema [Unknown]

NARRATIVE: CASE EVENT DATE: 20141231
